FAERS Safety Report 14317423 (Version 3)
Quarter: 2018Q1

REPORT INFORMATION
  Report Type: Report from Study
  Country: ES (occurrence: ES)
  Receive Date: 20171222
  Receipt Date: 20180215
  Transmission Date: 20180509
  Serious: Yes (Death, Hospitalization)
  Sender: FDA-Public Use
  Company Number: ES-ROCHE-2041653

PATIENT
  Age: 43 Year
  Sex: Male

DRUGS (5)
  1. PREDNISONE. [Concomitant]
     Active Substance: PREDNISONE
     Route: 042
     Dates: start: 20171121, end: 20171123
  2. PREDNISONE. [Concomitant]
     Active Substance: PREDNISONE
     Indication: ENCEPHALITIS
     Route: 048
     Dates: start: 20171114, end: 20171117
  3. COBIMETINIB. [Suspect]
     Active Substance: COBIMETINIB
     Indication: MALIGNANT MELANOMA
     Dosage: DATE OF MOST RECENT DOSE (60 MG) PRIOR TO SAE ONSET: 17/NOV/2017.?FREQUENCY AS PER PROTOCOL: ON DAY
     Route: 048
     Dates: start: 20170503
  4. ATEZOLIZUMAB. [Suspect]
     Active Substance: ATEZOLIZUMAB
     Indication: MALIGNANT MELANOMA
     Dosage: DATE OF MOST RECENT DOSE PRIOR TO SAE ONSET: 26/OCT/2017.?FREQUENCY AS PER PROTOCOL: ON DAY 1 AND 15
     Route: 042
     Dates: start: 20170608
  5. VEMURAFENIB. [Suspect]
     Active Substance: VEMURAFENIB
     Indication: MALIGNANT MELANOMA
     Dosage: DATE OF MOST RECENT DOSE (TOTAL NUMBER OF TABLETS: 12) PRIOR TO SAE ONSET: 17/NOV/2017.?FREQUENCY AS
     Route: 048
     Dates: start: 20170503

REACTIONS (1)
  - Epilepsy [Fatal]

NARRATIVE: CASE EVENT DATE: 20171210
